FAERS Safety Report 11440085 (Version 1)
Quarter: 2015Q3

REPORT INFORMATION
  Report Type: Spontaneous
  Country: US (occurrence: US)
  Receive Date: 20150901
  Receipt Date: 20150901
  Transmission Date: 20151125
  Serious: Yes (Other)
  Sender: FDA-Public Use
  Company Number: US-ROCHE-1144615

PATIENT
  Age: 53 Year

DRUGS (6)
  1. RIBAVIRIN. [Suspect]
     Active Substance: RIBAVIRIN
     Indication: HEPATITIS C
     Route: 048
     Dates: start: 20120504, end: 20120706
  2. INCIVEK [Suspect]
     Active Substance: TELAPREVIR
     Indication: HEPATITIS C
     Route: 048
     Dates: start: 20120504, end: 20120706
  3. KEFLEX [Suspect]
     Active Substance: CEPHALEXIN
     Indication: PRODUCT USED FOR UNKNOWN INDICATION
     Route: 048
     Dates: start: 20120906
  4. PREDNISONE. [Concomitant]
     Active Substance: PREDNISONE
  5. PEGASYS [Suspect]
     Active Substance: PEGINTERFERON ALFA-2A
     Indication: HEPATITIS C
     Route: 058
     Dates: start: 20120504, end: 20120706
  6. MOTRIN [Concomitant]
     Active Substance: IBUPROFEN
     Dosage: 200-38 MG
     Route: 048

REACTIONS (4)
  - Weight increased [Unknown]
  - Dyspnoea [Recovered/Resolved]
  - Swelling face [Not Recovered/Not Resolved]
  - Abdominal distension [Not Recovered/Not Resolved]
